FAERS Safety Report 7322410-5 (Version None)
Quarter: 2011Q1

REPORT INFORMATION
  Report Type: 
  Country: None (occurrence: None)
  Receive Date: 20110119
  Receipt Date: 20100520
  Transmission Date: 20110831
  Serious: Yes (Other)
  Sender: FDA-Public Use
  Company Number: A-NJ2008-23081

PATIENT
  Age: 69 Year
  Sex: Male
  Weight: 85.3 kg

DRUGS (12)
  1. PROCARDIA [Concomitant]
  2. PRILOSEC (OMEPRAZOLE) [Concomitant]
  3. LASIX [Concomitant]
  4. ASPIRIN [Concomitant]
  5. PLAQUENIL [Concomitant]
  6. ALBUTEROL (SALBUTAMOL SULFATE) [Concomitant]
  7. TRACLEER [Suspect]
     Indication: PULMONARY ARTERIAL HYPERTENSION
     Dosage: 125 MG, BID, ORAL, 62.5 MG, BID, ORAL, 62.5 MG, BID, ORAL
     Route: 048
     Dates: start: 20081216, end: 20090514
  8. TRACLEER [Suspect]
     Indication: PULMONARY ARTERIAL HYPERTENSION
     Dosage: 125 MG, BID, ORAL, 62.5 MG, BID, ORAL, 62.5 MG, BID, ORAL
     Route: 048
     Dates: start: 20081015, end: 20081208
  9. TRACLEER [Suspect]
     Indication: PULMONARY ARTERIAL HYPERTENSION
     Dosage: 125 MG, BID, ORAL, 62.5 MG, BID, ORAL, 62.5 MG, BID, ORAL
     Route: 048
     Dates: start: 20090515, end: 20100301
  10. TRAMADOL HCL [Concomitant]
  11. ZESTRIL [Concomitant]
  12. FLU (INFLUENZA VACCINE) [Concomitant]

REACTIONS (4)
  - LIVER FUNCTION TEST ABNORMAL [None]
  - RASH [None]
  - ASPARTATE AMINOTRANSFERASE INCREASED [None]
  - BLOOD ALKALINE PHOSPHATASE INCREASED [None]
